FAERS Safety Report 4474883-3 (Version None)
Quarter: 2004Q4

REPORT INFORMATION
  Report Type: 
  Country: None (occurrence: None)
  Receive Date: 20041014
  Receipt Date: 20041007
  Transmission Date: 20050328
  Serious: Yes (Other)
  Sender: FDA-Public Use
  Company Number: US-MERCK-0410USA01184

PATIENT
  Sex: Female

DRUGS (2)
  1. PROVERA [Concomitant]
     Route: 065
  2. VIOXX [Suspect]
     Route: 048

REACTIONS (2)
  - CEREBROVASCULAR ACCIDENT [None]
  - HYPERTENSION [None]
